FAERS Safety Report 15672693 (Version 1)
Quarter: 2018Q4

REPORT INFORMATION
  Report Type: Report from Study
  Country: US (occurrence: US)
  Receive Date: 20181129
  Receipt Date: 20181129
  Transmission Date: 20190205
  Serious: Yes (Hospitalization)
  Sender: FDA-Public Use
  Company Number: US-JNJFOC-20181137164

PATIENT
  Age: 64 Year
  Sex: Male

DRUGS (1)
  1. IBRUTINIB [Suspect]
     Active Substance: IBRUTINIB
     Indication: B-CELL LYMPHOMA
     Dosage: 560 MG, QD ON DAYS 1 TO 28
     Route: 048
     Dates: start: 20140318, end: 20181110

REACTIONS (1)
  - Cystitis noninfective [Recovering/Resolving]

NARRATIVE: CASE EVENT DATE: 20181109
